FAERS Safety Report 8200197-1 (Version None)
Quarter: 2012Q1

REPORT INFORMATION
  Report Type: 
  Country: None (occurrence: None)
  Receive Date: 20120312
  Receipt Date: 20120305
  Transmission Date: 20120608
  Serious: Yes (Hospitalization)
  Sender: FDA-Public Use
  Company Number: TW-PFIZER INC-2012057639

PATIENT
  Age: 47 Year
  Sex: Female

DRUGS (3)
  1. EPIRUBICIN [Suspect]
     Indication: BREAST CANCER
     Dosage: UNK, CYCLIC
  2. CYCLOPHOSPHAMIDE [Suspect]
     Indication: BREAST CANCER
     Dosage: UNK, CYCLIC
  3. FLUOROURACIL [Suspect]
     Indication: BREAST CANCER
     Dosage: UNK, CYCLIC

REACTIONS (2)
  - VISION BLURRED [None]
  - INTRAOCULAR PRESSURE INCREASED [None]
